FAERS Safety Report 4368672-8 (Version None)
Quarter: 2004Q2

REPORT INFORMATION
  Report Type: 
  Country: None (occurrence: None)
  Receive Date: 20040602
  Receipt Date: 20040519
  Transmission Date: 20050107
  Serious: Yes (Other)
  Sender: FDA-Public Use
  Company Number: 2004-05-1249

PATIENT
  Sex: Male

DRUGS (2)
  1. NASONEX [Suspect]
     Indication: RHINITIS
     Dosage: NASAL SPRAY
     Route: 045
     Dates: start: 20040501
  2. AERIUS (DESLORATADINE) [Concomitant]

REACTIONS (5)
  - CONJUNCTIVAL HAEMORRHAGE [None]
  - DYSPNOEA [None]
  - EYELID OEDEMA [None]
  - NASAL OEDEMA [None]
  - ORAL MUCOSAL BLISTERING [None]
